FAERS Safety Report 6376176-6 (Version None)
Quarter: 2009Q3

REPORT INFORMATION
  Report Type: 
  Country: None (occurrence: None)
  Receive Date: 20090918
  Receipt Date: 20090904
  Transmission Date: 20100115
  Serious: Yes (Hospitalization, Other)
  Sender: FDA-Public Use
  Company Number: AUR-APL-2009-00586

PATIENT
  Age: 69 Year
  Sex: Male
  Weight: 71.9 kg

DRUGS (1)
  1. SIMVASTATIN [Suspect]
     Indication: HYPERCHOLESTEROLAEMIA
     Dosage: ORAL
     Route: 048

REACTIONS (3)
  - CRUSH SYNDROME [None]
  - HAEMODIALYSIS [None]
  - RHABDOMYOLYSIS [None]
